FAERS Safety Report 21904647 (Version 1)
Quarter: 2023Q1

REPORT INFORMATION
  Report Type: Spontaneous
  Country: CH (occurrence: CH)
  Receive Date: 20230124
  Receipt Date: 20230124
  Transmission Date: 20230417
  Serious: Yes (Hospitalization, Other)
  Sender: FDA-Public Use
  Company Number: None

PATIENT
  Age: 85 Year
  Sex: Male

DRUGS (10)
  1. PAXLOVID [Interacting]
     Active Substance: NIRMATRELVIR\RITONAVIR
     Dosage: 3-0-3-0
     Route: 048
     Dates: start: 20221111, end: 20221115
  2. ALDACTONE [Interacting]
     Active Substance: SPIRONOLACTONE
     Dosage: 25MG 1-0-0-0 DURING HOSPITALIZATION FOR HYPERKALEMIA TEMPORARILY PAUSED
     Route: 048
     Dates: end: 20221119
  3. PROGRAF [Interacting]
     Active Substance: TACROLIMUS
     Dosage: 0.5 MG 1-0-1
     Route: 048
     Dates: end: 20221121
  4. PROGRAF [Interacting]
     Active Substance: TACROLIMUS
     Dosage: 0.5 MG 1-0-1
     Route: 048
     Dates: start: 20221124
  5. ASS CARDIO SPIRIG [Concomitant]
     Dosage: 100 MG 1-0-0
     Route: 048
  6. CLOPIDOGREL HYDROCHLORIDE [Concomitant]
     Active Substance: CLOPIDOGREL HYDROCHLORIDE
     Dosage: 75 MG, 1X/DAY
     Route: 048
  7. SODIUM CHONDROITIN SULFATE [Concomitant]
     Active Substance: SODIUM CHONDROITIN SULFATE
     Dosage: 800 MG, 1X/DAY
     Route: 048
  8. BENSERAZIDE HYDROCHLORIDE\LEVODOPA [Concomitant]
     Active Substance: BENSERAZIDE HYDROCHLORIDE\LEVODOPA
     Dosage: 125 MG 1-1-1-0
     Route: 048
  9. AZATHIOPRINE [Concomitant]
     Active Substance: AZATHIOPRINE
     Dosage: 100 MG, 1X/DAY
     Route: 048
  10. DUTASTERID TAMSULOSIN SANDOZ [Concomitant]
     Dosage: 0.5/0.4 MG 1-0-0-0
     Route: 048

REACTIONS (7)
  - Acute kidney injury [Recovered/Resolved]
  - Drug interaction [Recovered/Resolved]
  - Hyperkalaemia [Recovered/Resolved]
  - Diarrhoea [Recovered/Resolved]
  - Drug interaction [Recovered/Resolved]
  - Immunosuppressant drug level increased [Recovered/Resolved]
  - Nephropathy toxic [Unknown]

NARRATIVE: CASE EVENT DATE: 20221111
